FAERS Safety Report 25259406 (Version 2)
Quarter: 2025Q2

REPORT INFORMATION
  Report Type: Spontaneous
  Country: GB (occurrence: GB)
  Receive Date: 20250501
  Receipt Date: 20250512
  Transmission Date: 20250717
  Serious: Yes (Death, Life-Threatening, Other)
  Sender: MYLAN
  Company Number: None

PATIENT

DRUGS (16)
  1. PREGABALIN [Suspect]
     Active Substance: PREGABALIN
     Indication: Product used for unknown indication
  2. PREGABALIN [Suspect]
     Active Substance: PREGABALIN
     Route: 065
  3. PREGABALIN [Suspect]
     Active Substance: PREGABALIN
     Route: 065
  4. PREGABALIN [Suspect]
     Active Substance: PREGABALIN
  5. ALPRAZOLAM [Concomitant]
     Active Substance: ALPRAZOLAM
  6. ALPRAZOLAM [Concomitant]
     Active Substance: ALPRAZOLAM
     Route: 065
  7. ALPRAZOLAM [Concomitant]
     Active Substance: ALPRAZOLAM
     Route: 065
  8. ALPRAZOLAM [Concomitant]
     Active Substance: ALPRAZOLAM
  9. VALSARTAN [Concomitant]
     Active Substance: VALSARTAN
  10. VALSARTAN [Concomitant]
     Active Substance: VALSARTAN
     Route: 065
  11. VALSARTAN [Concomitant]
     Active Substance: VALSARTAN
     Route: 065
  12. VALSARTAN [Concomitant]
     Active Substance: VALSARTAN
  13. IBUPROFEN [Concomitant]
     Active Substance: IBUPROFEN
  14. IBUPROFEN [Concomitant]
     Active Substance: IBUPROFEN
     Route: 065
  15. IBUPROFEN [Concomitant]
     Active Substance: IBUPROFEN
     Route: 065
  16. IBUPROFEN [Concomitant]
     Active Substance: IBUPROFEN

REACTIONS (2)
  - Completed suicide [Fatal]
  - Respiratory depression [Not Recovered/Not Resolved]
